FAERS Safety Report 15616668 (Version 1)
Quarter: 2018Q4

REPORT INFORMATION
  Report Type: Spontaneous
  Country: US (occurrence: US)
  Receive Date: 20181108
  Receipt Date: 20181108
  Transmission Date: 20190205
  Serious: Yes (Hospitalization)
  Sender: FDA-Public Use
  Company Number: None

PATIENT
  Age: 58 Year
  Sex: Male
  Weight: 51.3 kg

DRUGS (1)
  1. WARFARIN [Suspect]
     Active Substance: WARFARIN
     Indication: PULMONARY EMBOLISM
     Dates: start: 20180106, end: 20180829

REACTIONS (4)
  - Decubitus ulcer [None]
  - Gastric haemorrhage [None]
  - Oesophagitis [None]
  - Escherichia infection [None]

NARRATIVE: CASE EVENT DATE: 20180829
